FAERS Safety Report 24737686 (Version 1)
Quarter: 2024Q4

REPORT INFORMATION
  Report Type: Spontaneous
  Country: US (occurrence: None)
  Receive Date: 20241216
  Receipt Date: 20241216
  Transmission Date: 20250114
  Serious: Yes (Hospitalization)
  Sender: Public
  Company Number: None

PATIENT
  Sex: Female

DRUGS (2)
  1. SILDENAFIL CITRATE [Suspect]
     Active Substance: SILDENAFIL CITRATE
     Indication: Pulmonary arterial hypertension
     Dosage: FREQUENCY : TWICE A DAY;?
     Route: 048
     Dates: start: 202312
  2. REMODULIN [Suspect]
     Active Substance: TREPROSTINIL

REACTIONS (6)
  - Infusion site pain [None]
  - Headache [None]
  - Diarrhoea [None]
  - Nausea [None]
  - Umbilical hernia [None]
  - Cardiac disorder [None]
